FAERS Safety Report 11062952 (Version 1)
Quarter: 2015Q2

REPORT INFORMATION
  Report Type: Report from Study
  Country: DE (occurrence: DE)
  Receive Date: 20150424
  Receipt Date: 20150424
  Transmission Date: 20150821
  Serious: Yes (Hospitalization)
  Sender: FDA-Public Use
  Company Number: PHHO2009DE06315

PATIENT
  Age: 61 Year
  Sex: Male
  Weight: 69.8 kg

DRUGS (7)
  1. EVEROLIMUS [Suspect]
     Active Substance: EVEROLIMUS
     Indication: RENAL TRANSPLANT
     Dosage: 200 MG, UNK
     Route: 048
     Dates: start: 20090512
  2. DECORTIN [Concomitant]
     Active Substance: PREDNISONE
     Indication: IMMUNOSUPPRESSION
  3. MYFORTIC [Concomitant]
     Active Substance: MYCOPHENOLATE SODIUM
     Indication: RENAL TRANSPLANT
     Dosage: 1440 MG, UNK
     Route: 048
     Dates: start: 20080811
  4. SIMULECT [Concomitant]
     Active Substance: BASILIXIMAB
     Indication: IMMUNOSUPPRESSION
     Dosage: 10 MG, UNK
     Route: 042
     Dates: start: 20080815
  5. SIMULECT [Concomitant]
     Active Substance: BASILIXIMAB
     Indication: RENAL TRANSPLANT
     Dosage: 10 MG, UNK
     Route: 042
     Dates: start: 20080811, end: 20080811
  6. DECORTIN [Concomitant]
     Active Substance: PREDNISONE
     Indication: RENAL TRANSPLANT
     Dosage: 2.5 MG, UNK
     Route: 048
     Dates: start: 20090511
  7. MYFORTIC [Concomitant]
     Active Substance: MYCOPHENOLATE SODIUM
     Indication: IMMUNOSUPPRESSION

REACTIONS (4)
  - Headache [Recovered/Resolved]
  - Vertigo [Recovered/Resolved]
  - Pyrexia [Recovered/Resolved]
  - Nausea [Recovered/Resolved]

NARRATIVE: CASE EVENT DATE: 20090519
